FAERS Safety Report 19930193 (Version 2)
Quarter: 2022Q1

REPORT INFORMATION
  Report Type: Report from Study
  Country: US (occurrence: US)
  Receive Date: 20211007
  Receipt Date: 20220107
  Transmission Date: 20220423
  Serious: Yes (Hospitalization)
  Sender: FDA-Public Use
  Company Number: US-TAKEDA-US202026728

PATIENT
  Sex: Male

DRUGS (1)
  1. ECALLANTIDE [Suspect]
     Active Substance: ECALLANTIDE
     Indication: Immune system disorder
     Dosage: 30 MILLIGRAM, AS REQ^D
     Route: 058
     Dates: start: 20200228

REACTIONS (1)
  - Hereditary angioedema [Recovered/Resolved]
